FAERS Safety Report 8492051-5 (Version None)
Quarter: 2012Q3

REPORT INFORMATION
  Report Type: 
  Country: None (occurrence: None)
  Receive Date: 20120706
  Receipt Date: 20120705
  Transmission Date: 20120928
  Serious: Yes (Other)
  Sender: FDA-Public Use
  Company Number: IL-PFIZER INC-2012157039

PATIENT
  Age: 32 Year
  Sex: Male

DRUGS (4)
  1. GEODON [Suspect]
     Indication: SCHIZOPHRENIA
     Dosage: 20 MG, 2X/DAY
     Route: 048
     Dates: start: 20120625
  2. GEODON [Suspect]
     Dosage: 40 MG, 2X/DAY
     Route: 048
  3. GEODON [Suspect]
     Dosage: 20MG IN THE MORNING AND 80MG IN THE EVENING
  4. GEODON [Suspect]
     Dosage: 20 MG, 2X/DAY
     Route: 048

REACTIONS (2)
  - RESTLESSNESS [None]
  - SYNCOPE [None]
